FAERS Safety Report 5049433-3 (Version None)
Quarter: 2006Q3

REPORT INFORMATION
  Report Type: 
  Country: None (occurrence: None)
  Receive Date: 20060712
  Receipt Date: 20060630
  Transmission Date: 20061208
  Serious: Yes (Other)
  Sender: FDA-Public Use
  Company Number: CH-ROCHE-453728

PATIENT
  Age: 43 Year
  Sex: Female
  Weight: 75 kg

DRUGS (1)
  1. ROACCUTAN [Suspect]
     Indication: ACNE
     Route: 048
     Dates: start: 20050415, end: 20060515

REACTIONS (7)
  - AFFECT LABILITY [None]
  - AGGRESSION [None]
  - ANXIETY [None]
  - APATHY [None]
  - ASTHENIA [None]
  - DISSOCIATIVE DISORDER [None]
  - SUICIDAL IDEATION [None]
